FAERS Safety Report 13032217 (Version 1)
Quarter: 2016Q4

REPORT INFORMATION
  Report Type: Spontaneous
  Country: US (occurrence: US)
  Receive Date: 20161215
  Receipt Date: 20161215
  Transmission Date: 20170207
  Serious: No
  Sender: FDA-Public Use
  Company Number: US-ENDO PHARMACEUTICALS INC.-2016-003346

PATIENT
  Sex: Female
  Weight: 78.09 kg

DRUGS (3)
  1. PENICILLIN V POTASSIUM TABLETS [Suspect]
     Active Substance: PENICILLIN V POTASSIUM
     Indication: PRODUCT USED FOR UNKNOWN INDICATION
     Route: 065
  2. VOSPIRE [Concomitant]
     Indication: MYASTHENIC SYNDROME
  3. ALBUTEROL ER [Concomitant]
     Indication: MYASTHENIC SYNDROME

REACTIONS (1)
  - Rash [Unknown]
